FAERS Safety Report 7388726-1 (Version None)
Quarter: 2011Q2

REPORT INFORMATION
  Report Type: 
  Country: None (occurrence: None)
  Receive Date: 20110401
  Receipt Date: 20110329
  Transmission Date: 20111010
  Serious: Yes (Death, Life-Threatening)
  Sender: FDA-Public Use
  Company Number: JP-BAYER-2011-008922

PATIENT
  Weight: 73 kg

DRUGS (22)
  1. LASIX [Concomitant]
     Dosage: DAILY DOSE 80 MG
     Route: 048
     Dates: end: 20110118
  2. ATARAX [Concomitant]
     Dosage: DAILY DOSE .5 DF
     Route: 042
     Dates: start: 20110120, end: 20110120
  3. LASIX [Concomitant]
     Dosage: DAILY DOSE .5 DF
     Route: 042
     Dates: start: 20110124, end: 20110125
  4. ALOSITOL [Concomitant]
     Dosage: DAILY DOSE 100 MG
     Route: 048
     Dates: end: 20110118
  5. GLUCOBAY [Concomitant]
     Dosage: DAILY DOSE 300 MG
     Route: 048
     Dates: end: 20110118
  6. MORPHINE HYDROCHLORIDE [Concomitant]
     Dosage: DAILY DOSE 1 ML
     Route: 042
     Dates: start: 20110122, end: 20110125
  7. OXYCONTIN [Concomitant]
     Dosage: DAILY DOSE 10 MG
     Route: 048
     Dates: start: 20110120, end: 20110120
  8. NEXAVAR [Suspect]
     Indication: HEPATIC NEOPLASM MALIGNANT
     Dosage: DAILY DOSE 400 MG
     Route: 048
     Dates: start: 20110107, end: 20110119
  9. ALBUMIN (HUMAN) [Concomitant]
     Dosage: DAILY DOSE 50 ML
     Route: 042
     Dates: start: 20110107, end: 20110112
  10. SOLDEM 6 [Concomitant]
     Indication: NUTRITIONAL SUPPORT
     Dosage: DAILY DOSE 1000 ML
     Route: 042
     Dates: start: 20110119, end: 20110126
  11. PENTAZOCINE LACTATE [Concomitant]
     Dosage: DAILY DOSE .5 DF
     Route: 042
     Dates: start: 20110120, end: 20110123
  12. ALOSENN [Concomitant]
     Dosage: DAILY DOSE 1.5 G
     Route: 048
     Dates: end: 20110118
  13. URSO 250 [Concomitant]
     Dosage: DAILY DOSE 300 MG
     Route: 048
     Dates: end: 20110118
  14. OXINORM [Concomitant]
     Dosage: DAILY DOSE 1 DF
     Route: 048
     Dates: start: 20110114, end: 20110118
  15. MULTIVITAMIN ADDITIVE [Concomitant]
     Indication: NUTRITIONAL SUPPORT
     Dosage: DAILY DOSE 1 DF
     Route: 042
     Dates: start: 20110127, end: 20110127
  16. UNCODEABLE ^UNCLASSIFIABLE^ [Concomitant]
     Indication: NUTRITIONAL SUPPORT
     Dosage: DAILY DOSE 1 DF
     Route: 042
     Dates: start: 20110127, end: 20110127
  17. LIVACT [Concomitant]
     Dosage: DAILY DOSE 3 DF
     Route: 048
     Dates: start: 20110114, end: 20110118
  18. INSULIN HUMULIN [Concomitant]
     Dosage: UNK
     Route: 058
     Dates: start: 20110106, end: 20110127
  19. GASTER D [Concomitant]
     Dosage: DAILY DOSE 40 MG
     Route: 048
     Dates: end: 20110118
  20. ALDACTONE [Concomitant]
     Dosage: DAILY DOSE 75 MG
     Route: 048
     Dates: end: 20110118
  21. LOXOPROFEN [Concomitant]
     Dosage: DAILY DOSE 3 DF
     Route: 048
     Dates: end: 20110118
  22. VITAMEDIN [Concomitant]
     Indication: NUTRITIONAL SUPPORT
     Dosage: DAILY DOSE 1 DF
     Route: 042
     Dates: start: 20110120, end: 20110126

REACTIONS (2)
  - HEPATIC ENCEPHALOPATHY [None]
  - BLOOD BILIRUBIN INCREASED [None]
